FAERS Safety Report 23765485 (Version 1)
Quarter: 2024Q2

REPORT INFORMATION
  Report Type: Spontaneous
  Country: FR (occurrence: FR)
  Receive Date: 20240420
  Receipt Date: 20240420
  Transmission Date: 20240716
  Serious: Yes (Death, Other)
  Sender: FDA-Public Use
  Company Number: FR-AMGEN-FRASP2024075717

PATIENT

DRUGS (4)
  1. SOTORASIB [Suspect]
     Active Substance: SOTORASIB
     Indication: Non-small cell lung cancer
     Dosage: 960 MILLIGRAM, QD
     Route: 065
  2. SOTORASIB [Suspect]
     Active Substance: SOTORASIB
     Dosage: 720 MILLIGRAM, QD
     Route: 065
  3. SOTORASIB [Suspect]
     Active Substance: SOTORASIB
     Dosage: 480 MILLIGRAM, QD
     Route: 065
  4. SOTORASIB [Suspect]
     Active Substance: SOTORASIB
     Dosage: 240 MILLIGRAM, QD
     Route: 065

REACTIONS (13)
  - Diabetes mellitus [Unknown]
  - Pancreatitis [Unknown]
  - Cholestasis [Unknown]
  - Hepatitis [Unknown]
  - Mixed liver injury [Unknown]
  - Hepatotoxicity [Unknown]
  - Thrombocytopenia [Unknown]
  - Drug-induced liver injury [Unknown]
  - Non-small cell lung cancer metastatic [Unknown]
  - Respiratory failure [Fatal]
  - Oedema peripheral [Unknown]
  - Diarrhoea [Unknown]
  - Nausea [Unknown]
